FAERS Safety Report 9298682 (Version 1)
Quarter: 2013Q2

REPORT INFORMATION
  Report Type: Spontaneous
  Country: FR (occurrence: None)
  Receive Date: 20130515
  Receipt Date: 20130515
  Transmission Date: 20140414
  Serious: Yes (Other)
  Sender: FDA-Public Use
  Company Number: 2013-001479

PATIENT
  Age: 80 Year
  Sex: Male

DRUGS (5)
  1. ACTONEL [Suspect]
     Dosage: ONCE WEEKLY
     Route: 048
     Dates: end: 20130206
  2. CAPTEA [Suspect]
     Dosage: 1 TABLET
     Route: 048
     Dates: end: 20130206
  3. CALCIDOSE VITAMIN D (CALCIUM CARBONATE, COLECALCIFEROL) [Suspect]
     Dosage: 1 SACHET
     Route: 048
     Dates: end: 20130206
  4. EBIXA [Suspect]
     Route: 048
     Dates: end: 20130226
  5. LEVOTHYROX (LEVOTHYROXINE SODIUM) INFUSION [Concomitant]

REACTIONS (1)
  - Neutropenia [None]
